FAERS Safety Report 5613900-1 (Version None)
Quarter: 2008Q1

REPORT INFORMATION
  Report Type: 
  Country: None (occurrence: None)
  Receive Date: 20080205
  Receipt Date: 20080130
  Transmission Date: 20080703
  Serious: Yes (Hospitalization)
  Sender: FDA-Public Use
  Company Number: IT-BAYER-200812219GPV

PATIENT
  Age: 79 Year
  Sex: Female

DRUGS (7)
  1. ACETYLSALICYLIC ACID SRT [Suspect]
     Indication: MYOCARDIAL ISCHAEMIA
     Dosage: TOTAL DAILY DOSE: 100 MG  UNIT DOSE: 100 MG
     Route: 048
     Dates: start: 20071022, end: 20071214
  2. PLAVIX [Suspect]
     Indication: MYOCARDIAL ISCHAEMIA
     Dosage: TOTAL DAILY DOSE: 75 MG  UNIT DOSE: 75 MG
     Route: 048
     Dates: start: 20071003, end: 20080103
  3. BRIOFIL (BAMIFILLINE) [Suspect]
     Indication: BRONCHOPNEUMOPATHY
     Dosage: TOTAL DAILY DOSE: 600 MG  UNIT DOSE: 600 MG
     Route: 048
     Dates: start: 20071102, end: 20080103
  4. DERMATRANS (NYTROGLICERIN) [Concomitant]
     Indication: DRUG USE FOR UNKNOWN INDICATION
     Dosage: TOTAL DAILY DOSE: 10 MG  UNIT DOSE: 10 MG
     Route: 062
     Dates: start: 20071022, end: 20080103
  5. ENTACT (ESCITALOPRAM) [Concomitant]
     Indication: DRUG USE FOR UNKNOWN INDICATION
     Route: 048
     Dates: start: 20071022, end: 20080103
  6. SPIRIVA [Concomitant]
     Indication: DRUG USE FOR UNKNOWN INDICATION
     Route: 045
     Dates: start: 20071009, end: 20080103
  7. TOTALIP (ATORVASTATIN) [Concomitant]
     Indication: DRUG USE FOR UNKNOWN INDICATION
     Route: 048
     Dates: start: 20071022, end: 20071214

REACTIONS (1)
  - HAEMATEMESIS [None]
